FAERS Safety Report 5000559-X (Version None)
Quarter: 2006Q2

REPORT INFORMATION
  Report Type: 
  Country: None (occurrence: None)
  Receive Date: 20060512
  Receipt Date: 20060125
  Transmission Date: 20061013
  Serious: No
  Sender: FDA-Public Use
  Company Number: US-BRISTOL-MYERS SQUIBB COMPANY-13260575

PATIENT
  Sex: Female

DRUGS (2)
  1. CYTOXAN [Suspect]
  2. ADRIAMYCIN PFS [Concomitant]

REACTIONS (3)
  - DRY EYE [None]
  - EYE PRURITUS [None]
  - PHOTOSENSITIVITY REACTION [None]
